FAERS Safety Report 5043081-7 (Version None)
Quarter: 2006Q3

REPORT INFORMATION
  Report Type: 
  Country: None (occurrence: None)
  Receive Date: 20060705
  Receipt Date: 20060622
  Transmission Date: 20061208
  Serious: Yes (Hospitalization, Other)
  Sender: FDA-Public Use
  Company Number: US-AVENTIS-200615401US

PATIENT
  Sex: Male

DRUGS (12)
  1. LANTUS [Suspect]
     Indication: DIABETES MELLITUS NON-INSULIN-DEPENDENT
     Dosage: DOSE UNIT: UNITS
  2. LANTUS [Suspect]
     Dosage: DOSE: UNK
  3. LANTUS [Suspect]
     Dosage: DOSE UNIT: UNITS
     Dates: start: 20060101
  4. LANTUS [Suspect]
     Dosage: DOSE: UNK
     Dates: start: 20060613, end: 20060616
  5. COMBIVENT [Suspect]
     Dosage: DOSE: UNK
     Dates: end: 20060101
  6. HUMULIN N [Concomitant]
     Dosage: DOSE: UNK
  7. HUMALOG [Concomitant]
     Dosage: DOSE: UNK
  8. COUMADIN [Concomitant]
     Dosage: DOSE: UNK
  9. COUMADIN [Concomitant]
     Dosage: DOSE: UNK
  10. LASIX [Concomitant]
     Dosage: DOSE: UNK
  11. DIOVAN [Concomitant]
     Dosage: DOSE: UNK
  12. DIGITEK [Concomitant]
     Dosage: DOSE: UNK

REACTIONS (14)
  - APHASIA [None]
  - ASTHENIA [None]
  - BLINDNESS [None]
  - BLINDNESS UNILATERAL [None]
  - BRONCHOSCOPY [None]
  - CEREBROVASCULAR ACCIDENT [None]
  - COGNITIVE DISORDER [None]
  - CONVULSION [None]
  - EYE HAEMORRHAGE [None]
  - FEELING ABNORMAL [None]
  - HEMIPLEGIA [None]
  - LETHARGY [None]
  - THINKING ABNORMAL [None]
  - TREMOR [None]
